FAERS Safety Report 4947953-0 (Version None)
Quarter: 2006Q1

REPORT INFORMATION
  Report Type: 
  Country: None (occurrence: None)
  Receive Date: 20060313
  Receipt Date: 20060228
  Transmission Date: 20060701
  Serious: Yes (Hospitalization)
  Sender: FDA-Public Use
  Company Number: 13590

PATIENT
  Age: 73 Year
  Sex: Female

DRUGS (4)
  1. PACLITAXEL [Suspect]
     Indication: OVARIAN EPITHELIAL CANCER RECURRENT
     Dosage: 297.5 MG DAILY IV
     Route: 042
     Dates: start: 20060201, end: 20060201
  2. CARBOPLATIN [Suspect]
     Dosage: 660 MG DAILY IV
     Route: 042
  3. BENDROFLUAZIDE [Concomitant]
  4. ONDANSETRON [Concomitant]

REACTIONS (3)
  - CONSTIPATION [None]
  - DYSURIA [None]
  - URINARY RETENTION [None]
